FAERS Safety Report 7343849-8 (Version None)
Quarter: 2011Q1

REPORT INFORMATION
  Report Type: 
  Country: None (occurrence: None)
  Receive Date: 20110310
  Receipt Date: 20110303
  Transmission Date: 20110831
  Serious: Yes (Hospitalization)
  Sender: FDA-Public Use
  Company Number: CN-ROCHE-763341

PATIENT
  Age: 38 Year
  Sex: Male
  Weight: 60 kg

DRUGS (5)
  1. HERBESSER [Concomitant]
     Indication: HYPERTENSION
     Route: 048
  2. COZAAR [Concomitant]
     Indication: HYPERTENSION
     Route: 048
  3. BAILING CAPSULE [Concomitant]
     Indication: RENAL TRANSPLANT
     Dosage: MORNING:75MG,AFTERNOON:100MG
     Route: 048
     Dates: start: 20110105
  4. CELLCEPT [Suspect]
     Indication: RENAL TRANSPLANT
     Dosage: MORNING:0.75G,EVENING:1G
     Route: 048
     Dates: start: 20110105
  5. CYCLOSPORINE [Concomitant]
     Indication: RENAL TRANSPLANT
     Dosage: MORNING:0.75G,EVENING:1G
     Route: 048
     Dates: start: 20110105

REACTIONS (1)
  - CEREBROVASCULAR ACCIDENT [None]
